FAERS Safety Report 9983476 (Version 3)
Quarter: 2014Q2

REPORT INFORMATION
  Report Type: Spontaneous
  Country: JP (occurrence: JP)
  Receive Date: 20140307
  Receipt Date: 20140515
  Transmission Date: 20141212
  Serious: Yes (Hospitalization, Other)
  Sender: FDA-Public Use
  Company Number: JP-NOVOPROD-401620

PATIENT
  Age: 5 Year
  Sex: Male
  Weight: 13.3 kg

DRUGS (7)
  1. NORDITROPIN FLEXPROCHU 6.7 MG/ML [Suspect]
     Indication: GROWTH HORMONE DEFICIENCY
     Dosage: 1.5 MG, QW (0.25MG/6TIMES/WEEK)
     Route: 058
     Dates: start: 20120823
  2. NORDITROPIN FLEXPROCHU 6.7 MG/ML [Suspect]
     Dosage: 2.05 MG, QW
     Route: 058
     Dates: start: 20121213
  3. NORDITROPIN FLEXPROCHU 6.7 MG/ML [Suspect]
     Dosage: 2.4 MG, QW
     Route: 058
     Dates: start: 20130711, end: 20140215
  4. CORTRIL                            /00028601/ [Concomitant]
     Indication: ADRENAL INSUFFICIENCY
     Dosage: 4.5-6 MG/DAY
     Route: 048
     Dates: start: 20120823
  5. THYRADIN-S [Concomitant]
     Indication: HYPOTHYROIDISM
     Dosage: 20-30MCG/DAY
     Route: 048
     Dates: start: 20120322
  6. DESMOPRESSIN [Concomitant]
     Indication: DIABETES INSIPIDUS
     Dosage: 1.0-3MCG
     Route: 045
     Dates: start: 20120420
  7. INCREMIN                           /00023544/ [Concomitant]
     Indication: IRON DEFICIENCY ANAEMIA
     Dosage: 5 ML, BID
     Route: 048
     Dates: start: 20121214, end: 20130811

REACTIONS (2)
  - Craniopharyngioma [Recovered/Resolved with Sequelae]
  - Neoplasm recurrence [Recovered/Resolved with Sequelae]
